FAERS Safety Report 15996211 (Version 1)
Quarter: 2019Q1

REPORT INFORMATION
  Report Type: Spontaneous
  Country: US (occurrence: US)
  Receive Date: 20190222
  Receipt Date: 20190222
  Transmission Date: 20190418
  Serious: No
  Sender: FDA-Public Use
  Company Number: US-EISAI MEDICAL RESEARCH-EC-2019-052022

PATIENT
  Age: 8 Year
  Sex: Male

DRUGS (1)
  1. BANZEL [Suspect]
     Active Substance: RUFINAMIDE
     Indication: PRODUCT USED FOR UNKNOWN INDICATION
     Dosage: 2.5 ML
     Route: 048
     Dates: start: 2018, end: 2018

REACTIONS (1)
  - Rash [Unknown]

NARRATIVE: CASE EVENT DATE: 2018
